FAERS Safety Report 4952080-2 (Version None)
Quarter: 2006Q1

REPORT INFORMATION
  Report Type: 
  Country: None (occurrence: None)
  Receive Date: 20060320
  Receipt Date: 20060306
  Transmission Date: 20060701
  Serious: Yes (Other)
  Sender: FDA-Public Use
  Company Number: PHFR2006GB01071

PATIENT
  Age: 49 Year
  Sex: Female
  Weight: 77 kg

DRUGS (5)
  1. ESTRADERM [Suspect]
     Dosage: 100 UG, TRANSDERMAL
     Route: 062
     Dates: start: 19980101
  2. METFORMIN (NGX)(METFORMIN) [Suspect]
     Indication: DIABETES MELLITUS NON-INSULIN-DEPENDENT
     Dosage: 500 MG, BID, ORAL
     Route: 048
     Dates: start: 20060210, end: 20060215
  3. METFORMIN (NGX)(METFORMIN) [Suspect]
     Indication: DIABETES MELLITUS NON-INSULIN-DEPENDENT
     Dosage: 500 MG, BID, ORAL
     Route: 048
     Dates: start: 20060220, end: 20060222
  4. ASPRIN (ACETYLSALICYLIC ACID) [Concomitant]
  5. SIMVASTATIN [Concomitant]

REACTIONS (2)
  - DRUG INTERACTION [None]
  - HEADACHE [None]
